FAERS Safety Report 14289293 (Version 4)
Quarter: 2018Q2

REPORT INFORMATION
  Report Type: Spontaneous
  Country: US (occurrence: US)
  Receive Date: 20171215
  Receipt Date: 20180412
  Transmission Date: 20180711
  Serious: No
  Sender: FDA-Public Use
  Company Number: US-PFIZER INC-2017534710

PATIENT
  Age: 72 Year
  Sex: Male

DRUGS (2)
  1. EUCRISA [Suspect]
     Active Substance: CRISABOROLE
     Dosage: UNK
  2. EUCRISA [Suspect]
     Active Substance: CRISABOROLE
     Indication: DERMATITIS ATOPIC
     Dosage: APPLIES TO FACE AND ARM ONCE IN THE MORNING AND ONCE IN THE EVENING
     Route: 061
     Dates: start: 201711, end: 201712

REACTIONS (2)
  - Application site pain [Not Recovered/Not Resolved]
  - Application site irritation [Unknown]

NARRATIVE: CASE EVENT DATE: 201711
